FAERS Safety Report 5143986-2 (Version None)
Quarter: 2006Q4

REPORT INFORMATION
  Report Type: 
  Country: None (occurrence: None)
  Receive Date: 20061102
  Receipt Date: 20061102
  Transmission Date: 20070319
  Serious: Yes (Disabling, Other)
  Sender: FDA-Public Use
  Company Number: None

PATIENT
  Age: 49 Year
  Sex: Female
  Weight: 52.1637 kg

DRUGS (1)
  1. RISPERDAL [Suspect]
     Indication: BIPOLAR DISORDER
     Dosage: .025 MG. ONCE DAILY PO
     Route: 048
     Dates: start: 20060928, end: 20061005

REACTIONS (13)
  - AMNESIA [None]
  - ANAEMIA [None]
  - COGNITIVE DISORDER [None]
  - DRUG HYPERSENSITIVITY [None]
  - ECZEMA [None]
  - PURPURA [None]
  - RASH PUSTULAR [None]
  - SKIN EXFOLIATION [None]
  - SKIN FISSURES [None]
  - SKIN HAEMORRHAGE [None]
  - SKIN INFLAMMATION [None]
  - SKIN ULCER [None]
  - WHITE BLOOD CELL COUNT DECREASED [None]
